FAERS Safety Report 9345856 (Version 2)
Quarter: 2013Q2

REPORT INFORMATION
  Report Type: Spontaneous
  Country: JP (occurrence: JP)
  Receive Date: 20130613
  Receipt Date: 20130624
  Transmission Date: 20140414
  Serious: Yes (Death, Other)
  Sender: FDA-Public Use
  Company Number: JP-PFIZER INC-2013177003

PATIENT
  Age: 60 Year
  Sex: Male

DRUGS (1)
  1. LYRICA [Suspect]
     Dosage: 75 MG, 1X/DAY
     Route: 048
     Dates: start: 201306, end: 201306

REACTIONS (5)
  - Metastases to lung [Fatal]
  - Oxygen saturation decreased [Unknown]
  - Dyspnoea [Unknown]
  - Oedema peripheral [Unknown]
  - Drug ineffective [Unknown]
